FAERS Safety Report 5154061-5 (Version None)
Quarter: 2006Q4

REPORT INFORMATION
  Report Type: 
  Country: None (occurrence: None)
  Receive Date: 20061116
  Receipt Date: 20061116
  Transmission Date: 20070319
  Serious: Yes (Life-Threatening, Other)
  Sender: FDA-Public Use
  Company Number: None

PATIENT
  Age: 44 Year
  Sex: Female

DRUGS (2)
  1. LEXAPRO [Suspect]
     Indication: PANIC ATTACK
     Dosage: 10 MG DAILY PO
     Route: 048
     Dates: start: 20050102, end: 20050228
  2. LEXAPRO [Suspect]
     Indication: WRONG DRUG ADMINISTERED
     Dosage: 10 MG DAILY PO
     Route: 048
     Dates: start: 20050102, end: 20050228

REACTIONS (9)
  - ANXIETY [None]
  - CONFUSIONAL STATE [None]
  - HEART RATE INCREASED [None]
  - NERVOUS SYSTEM DISORDER [None]
  - NERVOUSNESS [None]
  - PANIC ATTACK [None]
  - PARAESTHESIA [None]
  - PARANOIA [None]
  - SUICIDAL IDEATION [None]
